FAERS Safety Report 14300234 (Version 1)
Quarter: 2017Q4

REPORT INFORMATION
  Report Type: Spontaneous
  Country: US (occurrence: US)
  Receive Date: 20171219
  Receipt Date: 20171219
  Transmission Date: 20180321
  Serious: No
  Sender: FDA-Public Use
  Company Number: US-TEVA-731092ACC

PATIENT
  Sex: Male
  Weight: 113.5 kg

DRUGS (2)
  1. AZITHROMYCIN TABLETS, USP [Suspect]
     Active Substance: AZITHROMYCIN
     Indication: BRONCHITIS
     Dates: start: 201605
  2. AZITHROMYCIN TABLETS, USP [Suspect]
     Active Substance: AZITHROMYCIN
     Indication: INFLUENZA LIKE ILLNESS

REACTIONS (2)
  - Hyposmia [Not Recovered/Not Resolved]
  - Ageusia [Not Recovered/Not Resolved]

NARRATIVE: CASE EVENT DATE: 2016
